FAERS Safety Report 11089927 (Version 1)
Quarter: 2015Q2

REPORT INFORMATION
  Report Type: Spontaneous
  Country: US (occurrence: None)
  Receive Date: 20150501
  Receipt Date: 20150501
  Transmission Date: 20150821
  Serious: Yes (Hospitalization)
  Sender: FDA-Public Use
  Company Number: 2015JUB00110

PATIENT
  Age: 44 Year
  Sex: Male

DRUGS (3)
  1. DEER ANTLER VELVET [Concomitant]
  2. GINSENG [Suspect]
     Active Substance: ASIAN GINSENG
  3. LAMOTRIGINE (LAMOTRIGINE) [Suspect]
     Active Substance: LAMOTRIGINE
     Indication: GENERALISED TONIC-CLONIC SEIZURE

REACTIONS (2)
  - Drug interaction [None]
  - Drug reaction with eosinophilia and systemic symptoms [None]
